FAERS Safety Report 4948083-4 (Version None)
Quarter: 2006Q1

REPORT INFORMATION
  Report Type: 
  Country: None (occurrence: None)
  Receive Date: 20060320
  Receipt Date: 20050823
  Transmission Date: 20060701
  Serious: Yes (Hospitalization, Disabling)
  Sender: FDA-Public Use
  Company Number: US-MERCK-0508USA04100

PATIENT
  Age: 40 Year
  Sex: Male
  Weight: 114 kg

DRUGS (1)
  1. VIOXX [Suspect]
     Indication: ARTHRALGIA
     Route: 048
     Dates: start: 19990101, end: 20030628

REACTIONS (12)
  - ANXIETY [None]
  - BACK DISORDER [None]
  - CHEST PAIN [None]
  - CORONARY ARTERY RESTENOSIS [None]
  - DEPRESSION [None]
  - HEPATIC STEATOSIS [None]
  - HYPERHIDROSIS [None]
  - HYPERLIPIDAEMIA [None]
  - HYPERTENSION [None]
  - MUSCLE FATIGUE [None]
  - MUSCLE SPASMS [None]
  - MYOCARDIAL INFARCTION [None]
